FAERS Safety Report 9219191 (Version 1)
Quarter: 2013Q2

REPORT INFORMATION
  Report Type: Spontaneous
  Country: TR (occurrence: TR)
  Receive Date: 20130409
  Receipt Date: 20130409
  Transmission Date: 20140414
  Serious: Yes (Hospitalization)
  Sender: FDA-Public Use
  Company Number: TR-MYLANLABS-2013S1006967

PATIENT
  Age: 33 Year
  Sex: Male

DRUGS (1)
  1. NAPROXEN SODIUM [Suspect]
     Indication: RENAL COLIC
     Dosage: DF=550MG
     Route: 065

REACTIONS (1)
  - Kounis syndrome [Recovering/Resolving]
